FAERS Safety Report 7048000-X (Version None)
Quarter: 2010Q4

REPORT INFORMATION
  Report Type: 
  Country: None (occurrence: None)
  Receive Date: 20101015
  Receipt Date: 20101007
  Transmission Date: 20110411
  Serious: Yes (Other)
  Sender: FDA-Public Use
  Company Number: A0885442A

PATIENT
  Age: 10 Year
  Sex: Male

DRUGS (1)
  1. SORIATANE [Suspect]
     Indication: PSORIASIS
     Dosage: 10MCG PER DAY
     Route: 048
     Dates: start: 20100601, end: 20100915

REACTIONS (2)
  - HAEMOLYTIC ANAEMIA [None]
  - NEUTROPENIA [None]
